FAERS Safety Report 10371045 (Version 1)
Quarter: 2014Q1

REPORT INFORMATION
  Report Type: Spontaneous
  Country: US (occurrence: None)
  Receive Date: 20140306
  Receipt Date: 20140306
  Transmission Date: 20141002
  Serious: Yes (Hospitalization)
  Sender: FDA-Public Use
  Company Number: 163-21880-13010199

PATIENT
  Age: 59 Year
  Sex: Female

DRUGS (4)
  1. REVLIMID (LENALIDOMIDE) (25 MILLIGRAM, CAPSULES) [Suspect]
     Indication: PLASMA CELL MYELOMA
     Route: 048
     Dates: start: 200811
  2. ANTIBIOTICS (ANTIBIOTICS) (UNKNOWN) [Suspect]
     Indication: PRODUCT USED FOR UNKNOWN INDICATION
     Dates: start: 201206
  3. DEXAMETHASONE [Concomitant]
  4. VELCADE (BORTEZOMIB) [Concomitant]

REACTIONS (3)
  - Pneumonia [None]
  - Diarrhoea [None]
  - Contusion [None]
